FAERS Safety Report 23632686 (Version 1)
Quarter: 2024Q1

REPORT INFORMATION
  Report Type: Spontaneous
  Country: US (occurrence: US)
  Receive Date: 20240314
  Receipt Date: 20240314
  Transmission Date: 20240410
  Serious: No
  Sender: FDA-Public Use
  Company Number: ENDB23-04201

PATIENT
  Age: 71 Year
  Sex: Male

DRUGS (1)
  1. XIAFLEX [Suspect]
     Active Substance: COLLAGENASE CLOSTRIDIUM HISTOLYTICUM
     Indication: Dupuytren^s contracture
     Dosage: UNK MILLIGRAM, UNKNOWN ( 0.1 MG AND 0.4 MG DOSE IN RIGHT MIDDLE FINGER)
     Route: 051

REACTIONS (5)
  - Peripheral swelling [Unknown]
  - Contusion [Unknown]
  - Injection site haemorrhage [Unknown]
  - Wrong technique in product usage process [Unknown]
  - Off label use [Unknown]
